FAERS Safety Report 7235343-X (Version None)
Quarter: 2011Q1

REPORT INFORMATION
  Report Type: 
  Country: None (occurrence: None)
  Receive Date: 20110120
  Receipt Date: 20110113
  Transmission Date: 20110831
  Serious: Yes (Hospitalization, Other)
  Sender: FDA-Public Use
  Company Number: US-JNJFOC-20100801560

PATIENT
  Sex: Male

DRUGS (6)
  1. FUROSEMIDE [Concomitant]
  2. KLOR-CON [Concomitant]
  3. DIGOXIN [Concomitant]
  4. CARVEDILOL [Concomitant]
  5. WARFARIN [Concomitant]
  6. LEVAQUIN [Suspect]
     Indication: PNEUMONIA
     Route: 048

REACTIONS (4)
  - TRIGGER FINGER [None]
  - TENDON RUPTURE [None]
  - BURSITIS [None]
  - TENDONITIS [None]
